FAERS Safety Report 24712586 (Version 1)
Quarter: 2024Q4

REPORT INFORMATION
  Report Type: Spontaneous
  Country: US (occurrence: None)
  Receive Date: 20241209
  Receipt Date: 20241209
  Transmission Date: 20250114
  Serious: Yes (Hospitalization)
  Sender: Public
  Company Number: None

PATIENT
  Sex: Female

DRUGS (7)
  1. WINREVAIR [Suspect]
     Active Substance: SOTATERCEPT-CSRK
     Indication: Pulmonary arterial hypertension
     Dosage: 1.4ML EVERY 3 WEEKS SC
     Route: 058
     Dates: start: 202408
  2. STERILE DILUENT FOR REMODULIN [Concomitant]
     Active Substance: WATER
  3. SILDENAFIL CITRATE [Concomitant]
     Active Substance: SILDENAFIL CITRATE
  4. OPSUMIT [Concomitant]
     Active Substance: MACITENTAN
  5. DEVICE [Concomitant]
     Active Substance: DEVICE
  6. WINREVAIR [Concomitant]
     Active Substance: SOTATERCEPT-CSRK
  7. REMODULIN [Concomitant]
     Active Substance: TREPROSTINIL

REACTIONS (1)
  - Diarrhoea [None]
